FAERS Safety Report 8298344-9 (Version None)
Quarter: 2012Q2

REPORT INFORMATION
  Report Type: 
  Country: None (occurrence: None)
  Receive Date: 20120419
  Receipt Date: 20120413
  Transmission Date: 20120825
  Serious: Yes (Hospitalization)
  Sender: FDA-Public Use
  Company Number: DE-ROCHE-1059871

PATIENT
  Age: 47 Year
  Sex: Female
  Weight: 70 kg

DRUGS (2)
  1. PEGINTERFERON ALFA-2A [Suspect]
     Indication: HEPATITIS C
     Route: 058
     Dates: start: 20120329
  2. COPEGUS [Suspect]
     Indication: HEPATITIS C
     Dosage: COPEGUS 200 MG
     Route: 048
     Dates: start: 20120329

REACTIONS (1)
  - HAEMOPTYSIS [None]
